FAERS Safety Report 11934499 (Version 2)
Quarter: 2016Q1

REPORT INFORMATION
  Report Type: Spontaneous
  Country: IN (occurrence: IN)
  Receive Date: 20160121
  Receipt Date: 20160126
  Transmission Date: 20160526
  Serious: Yes (Death, Hospitalization)
  Sender: FDA-Public Use
  Company Number: PHHY2016IN006809

PATIENT
  Age: 35 Year
  Sex: Male

DRUGS (3)
  1. METHOTREXATE [Suspect]
     Active Substance: METHOTREXATE
     Indication: BLAST CRISIS IN MYELOGENOUS LEUKAEMIA
     Dosage: 12 MG, UNK
     Route: 037
  2. IMATINIB [Suspect]
     Active Substance: IMATINIB
     Indication: CHRONIC MYELOID LEUKAEMIA
     Dosage: 400 MG, QD
     Route: 065
  3. DEXAMETHASONE. [Suspect]
     Active Substance: DEXAMETHASONE
     Indication: BLAST CRISIS IN MYELOGENOUS LEUKAEMIA
     Dosage: 4 MG, QW2
     Route: 065

REACTIONS (9)
  - Metastases to central nervous system [Fatal]
  - Optic nerve disorder [Fatal]
  - Blast crisis in myelogenous leukaemia [Fatal]
  - Vomiting [Fatal]
  - Pachymeningitis [Fatal]
  - Disease progression [Fatal]
  - Headache [Fatal]
  - Blindness [Fatal]
  - Nuchal rigidity [Fatal]
